FAERS Safety Report 13543258 (Version 1)
Quarter: 2017Q2

REPORT INFORMATION
  Report Type: Report from Study
  Country: None (occurrence: CA)
  Receive Date: 20170514
  Receipt Date: 20170514
  Transmission Date: 20170830
  Serious: Yes (Other)
  Sender: FDA-Public Use
  Company Number: CA-ABBVIE-17P-028-1838606-00

PATIENT
  Age: 39 Year
  Sex: Female

DRUGS (2)
  1. HUMIRA [Suspect]
     Active Substance: ADALIMUMAB
     Indication: ANKYLOSING SPONDYLITIS
     Route: 058
     Dates: start: 20160204, end: 2017
  2. HUMIRA [Suspect]
     Active Substance: ADALIMUMAB
     Route: 058
     Dates: start: 201702

REACTIONS (10)
  - Pyrexia [Recovering/Resolving]
  - Pneumothorax [Recovered/Resolved]
  - Ankylosing spondylitis [Not Recovered/Not Resolved]
  - Malaise [Recovering/Resolving]
  - Chills [Recovering/Resolving]
  - Night sweats [Recovering/Resolving]
  - Cough [Recovering/Resolving]
  - Pneumonia [Recovered/Resolved]
  - Oropharyngeal pain [Recovering/Resolving]
  - Pain [Not Recovered/Not Resolved]

NARRATIVE: CASE EVENT DATE: 201612
